FAERS Safety Report 7262395-3 (Version None)
Quarter: 2011Q1

REPORT INFORMATION
  Report Type: 
  Country: None (occurrence: None)
  Receive Date: 20110130
  Receipt Date: 20101117
  Transmission Date: 20110831
  Serious: No
  Sender: FDA-Public Use
  Company Number: US-ABBOTT-10P-163-0686044-00

PATIENT
  Sex: Female
  Weight: 90.8 kg

DRUGS (14)
  1. FOSAMAX [Concomitant]
     Indication: OSTEOPOROSIS
     Dosage: UNSURE OF STRENGTH
     Route: 048
  2. HUMIRA [Suspect]
     Indication: RHEUMATOID ARTHRITIS
     Route: 058
     Dates: start: 20100801, end: 20101117
  3. SERTRALINE HYDROCHLORIDE [Concomitant]
     Indication: DEPRESSION
     Route: 048
  4. DARVOCET-N 100 [Concomitant]
     Indication: ARTHRALGIA
     Dosage: MINIMAL USE
     Route: 048
  5. ALPHAGAN [Concomitant]
     Indication: PRODUCT USED FOR UNKNOWN INDICATION
     Dosage: THREE TIMES A DAY IN LEFT EYE
     Route: 047
  6. PROAIR HFA [Concomitant]
     Indication: ASTHMA
     Route: 055
  7. METHOTREXATE [Concomitant]
     Indication: RHEUMATOID ARTHRITIS
     Route: 048
  8. PANTOPRAZOLE [Concomitant]
     Indication: DYSPEPSIA
     Route: 048
  9. FOLIC ACID [Concomitant]
     Indication: VITAMIN SUPPLEMENTATION
     Dosage: UNKNOWN STRENGTH
     Route: 048
  10. PERCOCET [Concomitant]
     Indication: ARTHRALGIA
     Dosage: UNKNOWN STRENGTH
  11. MILOXICAM [Concomitant]
     Indication: ARTHRALGIA
     Route: 048
  12. TRAVATAN [Concomitant]
     Indication: GLAUCOMA
     Route: 047
  13. SYMBICORT [Concomitant]
     Indication: ASTHMA
     Route: 055
  14. TRIAMTERENE AND HYDROCHLOROTHIAZIDE [Concomitant]
     Indication: OEDEMA PERIPHERAL
     Dosage: UNKNOWN STRENGTH
     Route: 048

REACTIONS (4)
  - PRURITUS [None]
  - DYSPNOEA [None]
  - COUGH [None]
  - RASH ERYTHEMATOUS [None]
